FAERS Safety Report 8385763-5 (Version None)
Quarter: 2012Q2

REPORT INFORMATION
  Report Type: 
  Country: None (occurrence: None)
  Receive Date: 20120523
  Receipt Date: 20120523
  Transmission Date: 20120825
  Serious: Yes (Hospitalization)
  Sender: FDA-Public Use
  Company Number: None

PATIENT
  Age: 77 Year
  Sex: Male
  Weight: 78 kg

DRUGS (1)
  1. ASPIRIN [Suspect]
     Indication: CAROTID ARTERY STENOSIS
     Dosage: 81 MG EVERY DAY PO
     Route: 048
     Dates: start: 20120309

REACTIONS (7)
  - FATIGUE [None]
  - ABDOMINAL DISCOMFORT [None]
  - DYSARTHRIA [None]
  - TREMOR [None]
  - FAECES DISCOLOURED [None]
  - DUODENAL ULCER HAEMORRHAGE [None]
  - ANAEMIA [None]
